FAERS Safety Report 13505298 (Version 1)
Quarter: 2017Q2

REPORT INFORMATION
  Report Type: Spontaneous
  Country: US (occurrence: US)
  Receive Date: 20170502
  Receipt Date: 20170502
  Transmission Date: 20170830
  Serious: No
  Sender: FDA-Public Use
  Company Number: US-APOTEX-2016AP010447

PATIENT
  Age: 11 Year
  Sex: Male

DRUGS (2)
  1. TOPIRAMATE. [Suspect]
     Active Substance: TOPIRAMATE
     Dosage: 100 MG, BID
     Route: 048
  2. TOPIRAMATE. [Suspect]
     Active Substance: TOPIRAMATE
     Indication: FAMILIAL PERIODIC PARALYSIS
     Dosage: UNK
     Route: 048
     Dates: start: 2005

REACTIONS (1)
  - Sedation [Recovered/Resolved]
